FAERS Safety Report 4502275-7 (Version None)
Quarter: 2004Q4

REPORT INFORMATION
  Report Type: 
  Country: None (occurrence: None)
  Receive Date: 20041109
  Receipt Date: 20041022
  Transmission Date: 20050328
  Serious: Yes (Hospitalization)
  Sender: FDA-Public Use
  Company Number: S04-SWE-07224-01

PATIENT
  Age: 54 Year
  Sex: Female

DRUGS (3)
  1. CITALOPRAM HYDROBROMIDE [Suspect]
     Indication: MENOPAUSE
     Dosage: 20 MG QD PO
     Route: 048
     Dates: end: 20040802
  2. CITALOPRAM HYDROBROMIDE [Suspect]
     Indication: MOOD SWINGS
     Dosage: 20 MG QD PO
     Route: 048
     Dates: end: 20040802
  3. ZYBAN [Suspect]
     Indication: SMOKING CESSATION THERAPY
     Dosage: 150 MG QD PO
     Route: 048
     Dates: start: 20040726, end: 20040802

REACTIONS (2)
  - BLOOD PRESSURE INCREASED [None]
  - HEADACHE [None]
